FAERS Safety Report 8381404 (Version 6)
Quarter: 2012Q4

REPORT INFORMATION
  Report Type: 
  Country: JP (occurrence: JP)
  Receive Date: 20120131
  Receipt Date: 20121122
  Transmission Date: 20130627
  Serious: Yes (Death, Life-Threatening, Hospitalization, Other)
  Sender: FDA-Public Use
  Company Number: PHHY2012JP007218

PATIENT
  Age: 54 Year
  Sex: Male
  Weight: 62 kg

DRUGS (9)
  1. AFINITOR [Suspect]
     Indication: PANCREATIC NEUROENDOCRINE TUMOUR
     Dosage: 10 mg, daily
     Route: 048
     Dates: start: 20111117, end: 20120105
  2. SANDOSTATIN LAR [Concomitant]
     Indication: PANCREATIC NEUROENDOCRINE TUMOUR
     Dosage: 30 mg, UNK
     Route: 030
     Dates: end: 20120105
  3. TS 1 [Concomitant]
     Indication: PANCREATIC NEUROENDOCRINE TUMOUR
     Dosage: UNK UKN, UNK
     Route: 048
     Dates: start: 20110127, end: 20110801
  4. TOPOTECIN [Concomitant]
     Indication: PANCREATIC NEUROENDOCRINE TUMOUR
     Dosage: UNK UKN, UNK
     Dates: start: 20110909, end: 20111001
  5. CISPLATIN [Concomitant]
     Indication: PANCREATIC NEUROENDOCRINE TUMOUR
     Dosage: UNK UKN, UNK
     Dates: start: 20110909, end: 20111001
  6. TAKEPRON [Concomitant]
     Indication: PANCREATIC NEUROENDOCRINE TUMOUR
     Dosage: 15 mg, UNK
     Route: 048
  7. ALDACTONE [Concomitant]
     Indication: PANCREATIC NEUROENDOCRINE TUMOUR
     Dosage: 50 mg, UNK
     Route: 048
  8. LASIX [Concomitant]
     Indication: PANCREATIC NEUROENDOCRINE TUMOUR
     Dosage: 20 mg, UNK
     Route: 048
  9. CPT-11 [Concomitant]
     Dosage: UNK UKN, UNK

REACTIONS (8)
  - Jaundice cholestatic [Fatal]
  - Hepatic function abnormal [Fatal]
  - Neoplasm progression [Fatal]
  - Malignant neoplasm progression [Fatal]
  - Arrhythmia [Fatal]
  - Sepsis [Recovering/Resolving]
  - Cholangitis [Recovering/Resolving]
  - Respiratory failure [Recovered/Resolved]
